FAERS Safety Report 19182383 (Version 4)
Quarter: 2021Q3

REPORT INFORMATION
  Report Type: Report from Study
  Country: US (occurrence: US)
  Receive Date: 20210427
  Receipt Date: 20210923
  Transmission Date: 20211014
  Serious: No
  Sender: FDA-Public Use
  Company Number: US-ACADIA PHARMACEUTICALS INC.-ACA-2021-PIM-001264

PATIENT
  Age: 64 Year
  Sex: Female
  Weight: 90 kg

DRUGS (3)
  1. NUPLAZID [Suspect]
     Active Substance: PIMAVANSERIN TARTRATE
     Indication: PARKINSON^S DISEASE PSYCHOSIS
     Dosage: 34 MILLIGRAM, QD
     Route: 065
     Dates: start: 202103, end: 20210331
  2. NUPLAZID [Suspect]
     Active Substance: PIMAVANSERIN TARTRATE
     Indication: HALLUCINATION
     Dosage: 34 MILLIGRAM, QD
     Route: 048
     Dates: start: 20210828, end: 20210828
  3. NUPLAZID [Suspect]
     Active Substance: PIMAVANSERIN TARTRATE
     Indication: DELUSION

REACTIONS (17)
  - Nightmare [Unknown]
  - Insomnia [Unknown]
  - Parkinson^s disease [Unknown]
  - Tremor [Unknown]
  - Hallucination [Unknown]
  - Loss of personal independence in daily activities [Unknown]
  - Feeling abnormal [Unknown]
  - Drug ineffective [Unknown]
  - Coordination abnormal [Unknown]
  - Mobility decreased [Unknown]
  - Hallucination, visual [Unknown]
  - Malaise [Unknown]
  - Confusional state [Unknown]
  - Hallucination [Unknown]
  - Muscular weakness [Unknown]
  - Hallucination, olfactory [Unknown]
  - Dysgraphia [Unknown]

NARRATIVE: CASE EVENT DATE: 202108
